FAERS Safety Report 9215416 (Version 1)
Quarter: 2013Q2

REPORT INFORMATION
  Report Type: Report from Study
  Country: IT (occurrence: IT)
  Receive Date: 20130405
  Receipt Date: 20130405
  Transmission Date: 20140414
  Serious: Yes (Other)
  Sender: FDA-Public Use
  Company Number: IT-AMGEN-ITACT2011019241

PATIENT
  Age: 62 Year
  Sex: Male

DRUGS (2)
  1. DENOSUMAB [Suspect]
     Indication: PROSTATE CANCER
     Dates: start: 20071024, end: 20101215
  2. DELTACORTENE [Concomitant]
     Dosage: 25 MG, UNK
     Dates: start: 20080909

REACTIONS (1)
  - Osteonecrosis of jaw [Recovered/Resolved]
